FAERS Safety Report 23371483 (Version 1)
Quarter: 2024Q1

REPORT INFORMATION
  Report Type: Spontaneous
  Country: TW (occurrence: TW)
  Receive Date: 20240105
  Receipt Date: 20240105
  Transmission Date: 20240410
  Serious: Yes (Death)
  Sender: FDA-Public Use
  Company Number: TW-MYLANLABS-2024M1001187

PATIENT
  Age: 68 Year
  Sex: Male

DRUGS (7)
  1. PEMETREXED [Suspect]
     Active Substance: PEMETREXED
     Indication: Metastases to meninges
     Dosage: 25 MILLIGRAM
     Route: 037
     Dates: start: 20220322
  2. PEMETREXED [Suspect]
     Active Substance: PEMETREXED
     Dosage: 50 MILLIGRAM
     Route: 037
     Dates: start: 20220329
  3. BETAMETHASONE [Concomitant]
     Active Substance: BETAMETHASONE\BETAMETHASONE DIPROPIONATE
     Dosage: 2 MILLIGRAM
     Route: 037
     Dates: start: 20220322
  4. BETAMETHASONE [Concomitant]
     Active Substance: BETAMETHASONE\BETAMETHASONE DIPROPIONATE
     Dosage: 2 MILLIGRAM
     Route: 037
     Dates: start: 20220329
  5. METHYLCOBALAMIN [Concomitant]
     Active Substance: METHYLCOBALAMIN
     Dosage: 500 MILLIGRAM, TID
     Route: 065
  6. VITAMIN B12 [Concomitant]
     Active Substance: CYANOCOBALAMIN
     Dosage: 1 MILLIGRAM, QD
     Route: 030
     Dates: start: 20220317, end: 20220317
  7. PEMETREXED [Concomitant]
     Active Substance: PEMETREXED
     Dosage: 850 MILLIGRAM
     Route: 065
     Dates: start: 20210612, end: 20211015

REACTIONS (1)
  - Thrombocytopenia [Fatal]
